FAERS Safety Report 24072487 (Version 1)
Quarter: 2024Q3

REPORT INFORMATION
  Report Type: Report from Study
  Country: US (occurrence: US)
  Receive Date: 20240710
  Receipt Date: 20240710
  Transmission Date: 20241017
  Serious: Yes (Hospitalization)
  Sender: ABBVIE
  Company Number: US-ABBVIE-5832637

PATIENT
  Age: 69 Year
  Sex: Male

DRUGS (1)
  1. VENCLEXTA [Suspect]
     Active Substance: VENETOCLAX
     Indication: Chronic lymphocytic leukaemia
     Dosage: LAST ADMIN DATE-JUL 2024
     Route: 048
     Dates: start: 20240701

REACTIONS (5)
  - Dehydration [Recovering/Resolving]
  - Hypotension [Recovering/Resolving]
  - Asthenia [Unknown]
  - Fatigue [Unknown]
  - Fall [Unknown]

NARRATIVE: CASE EVENT DATE: 20240701
